FAERS Safety Report 24112481 (Version 2)
Quarter: 2025Q2

REPORT INFORMATION
  Report Type: Spontaneous
  Country: JP (occurrence: JP)
  Receive Date: 20240719
  Receipt Date: 20250404
  Transmission Date: 20250717
  Serious: Yes (Other)
  Sender: ALEXION PHARMACEUTICALS
  Company Number: 2024A161732

PATIENT
  Age: 49 Year

DRUGS (11)
  1. SAPHNELO [Suspect]
     Active Substance: ANIFROLUMAB-FNIA
     Indication: Systemic lupus erythematosus
  2. CISPLATIN [Concomitant]
     Active Substance: CISPLATIN
     Route: 065
  3. CISPLATIN [Concomitant]
     Active Substance: CISPLATIN
     Route: 065
  4. CISPLATIN [Concomitant]
     Active Substance: CISPLATIN
     Route: 065
  5. CISPLATIN [Concomitant]
     Active Substance: CISPLATIN
     Route: 065
  6. CISPLATIN [Concomitant]
     Active Substance: CISPLATIN
     Route: 065
  7. ADRENAL [Concomitant]
     Active Substance: EPINEPHRINE
     Route: 065
  8. GEMCITABINE [Concomitant]
     Active Substance: GEMCITABINE
     Route: 065
  9. GEMCITABINE [Concomitant]
     Active Substance: GEMCITABINE
     Route: 065
  10. GEMCITABINE [Concomitant]
     Active Substance: GEMCITABINE
     Route: 065
  11. GEMCITABINE [Concomitant]
     Active Substance: GEMCITABINE
     Route: 065

REACTIONS (1)
  - Pericarditis [Unknown]
